FAERS Safety Report 8786445 (Version 2)
Quarter: 2012Q4

REPORT INFORMATION
  Report Type: 
  Country: US (occurrence: US)
  Receive Date: 20120914
  Receipt Date: 20121002
  Transmission Date: 20130627
  Serious: No
  Sender: FDA-Public Use
  Company Number: US-PFIZER INC-2012225936

PATIENT
  Age: 83 Year
  Sex: Female
  Weight: 77.1 kg

DRUGS (1)
  1. NIFEDIPINE [Suspect]
     Dosage: UNK

REACTIONS (2)
  - Drug ineffective [Unknown]
  - Heart rate increased [Unknown]
